FAERS Safety Report 10194739 (Version 2)
Quarter: 2014Q4

REPORT INFORMATION
  Report Type: Spontaneous
  Country: US (occurrence: US)
  Receive Date: 20140526
  Receipt Date: 20141118
  Transmission Date: 20150528
  Serious: Yes (Death)
  Sender: FDA-Public Use
  Company Number: US-BRISTOL-MYERS SQUIBB COMPANY-20780219

PATIENT
  Age: 62 Year
  Sex: Female
  Weight: 119.72 kg

DRUGS (18)
  1. PHENTERMINE [Concomitant]
     Active Substance: PHENTERMINE
  2. PREVACID [Concomitant]
     Active Substance: LANSOPRAZOLE
  3. PLAVIX [Concomitant]
     Active Substance: CLOPIDOGREL BISULFATE
  4. VITAMINS [Concomitant]
     Active Substance: VITAMINS
  5. ZETIA [Concomitant]
     Active Substance: EZETIMIBE
  6. FOSAMAX [Concomitant]
     Active Substance: ALENDRONATE SODIUM
  7. LEVEMIR [Concomitant]
     Active Substance: INSULIN DETEMIR
     Indication: DIABETES MELLITUS
  8. WELCHOL [Concomitant]
     Active Substance: COLESEVELAM HYDROCHLORIDE
  9. AVANDAMET [Concomitant]
     Active Substance: METFORMIN HYDROCHLORIDE\ROSIGLITAZONE MALEATE
     Indication: DIABETES MELLITUS
  10. TOPROL XL [Concomitant]
     Active Substance: METOPROLOL SUCCINATE
  11. NOVOLOG [Concomitant]
     Active Substance: INSULIN ASPART
     Indication: DIABETES MELLITUS
  12. BYETTA [Suspect]
     Active Substance: EXENATIDE
     Indication: DIABETES MELLITUS
     Route: 058
     Dates: start: 20060324, end: 20120108
  13. BABY ASPIRIN [Concomitant]
     Active Substance: ASPIRIN
  14. GLIMEPIRIDE. [Concomitant]
     Active Substance: GLIMEPIRIDE
     Indication: DIABETES MELLITUS
  15. METOPROLOL [Concomitant]
     Active Substance: METOPROLOL
  16. RELAFEN [Concomitant]
     Active Substance: NABUMETONE
  17. ALTACE [Concomitant]
     Active Substance: RAMIPRIL
  18. BONIVA [Concomitant]
     Active Substance: IBANDRONATE SODIUM

REACTIONS (1)
  - Pancreatic carcinoma [Fatal]

NARRATIVE: CASE EVENT DATE: 201304
